FAERS Safety Report 7037676-9 (Version None)
Quarter: 2010Q4

REPORT INFORMATION
  Report Type: 
  Country: None (occurrence: None)
  Receive Date: 20101011
  Receipt Date: 20100308
  Transmission Date: 20110411
  Serious: Yes (Death, Life-Threatening, Other)
  Sender: FDA-Public Use
  Company Number: JP-BAYER-201040440GPV

PATIENT
  Age: 4 Year
  Sex: Female
  Weight: 14 kg

DRUGS (36)
  1. FLUDARABINE PHOSPHATE [Suspect]
     Indication: ALLOGENIC BONE MARROW TRANSPLANTATION THERAPY
     Dates: start: 20090408, end: 20090412
  2. THYMOGLOBULIN [Suspect]
     Dates: start: 20090413, end: 20090416
  3. MELPHALAN HYDROCHLORIDE [Suspect]
     Indication: UNRELATED DONOR BONE MARROW TRANSPLANTATION THERAPY
     Dates: start: 20090414, end: 20090415
  4. PIPERACILLIN SODIUM [Concomitant]
     Indication: INFECTION PROPHYLAXIS
     Dates: start: 20090408, end: 20090417
  5. FAMOTIDINE [Concomitant]
     Indication: HAEMORRHAGE PROPHYLAXIS
     Dates: start: 20090408, end: 20090526
  6. GRANISETRON HYDROCHLORIDE [Concomitant]
     Indication: PROPHYLAXIS OF NAUSEA AND VOMITING
     Dates: start: 20090408, end: 20090424
  7. HYDROCORTISONE SODIUM SUCCINATE [Concomitant]
     Indication: PROPHYLAXIS
     Dates: start: 20090408, end: 20090417
  8. GLYCYRRHIZIN-GLYCINE-CYSTEINE COMBINED DRUG [Concomitant]
     Indication: PROPHYLAXIS
     Dates: start: 20090408, end: 20090628
  9. GLUTATHIONE [Concomitant]
     Indication: PROPHYLAXIS
     Dates: start: 20090408, end: 20090628
  10. DALTEPARIN SODIUM [Concomitant]
     Indication: THROMBOSIS PROPHYLAXIS
     Dates: start: 20090408, end: 20090601
  11. MICAFUNGIN SODIUM [Concomitant]
     Indication: INFECTION PROPHYLAXIS
     Dates: start: 20090408, end: 20090615
  12. FUROSEMIDE [Concomitant]
     Indication: FACE OEDEMA
     Dates: start: 20090410, end: 20090417
  13. METHYLPREDNISOLONE SODIUM SUCCINATE [Concomitant]
     Indication: PREMEDICATION
     Dates: start: 20090413, end: 20090416
  14. HYDROXYZINE HYDROCHLORIDE [Concomitant]
     Indication: PREMEDICATION
     Dates: start: 20090413, end: 20090420
  15. TACROLIMUS [Concomitant]
     Indication: PROPHYLAXIS AGAINST GRAFT VERSUS HOST DISEASE
     Dates: start: 20090415, end: 20090517
  16. CEFTRIAXONE SODIUM [Concomitant]
     Indication: INFECTION PROPHYLAXIS
     Dates: start: 20090417, end: 20090425
  17. PREDNISOLONE SODIUM SUCCINATE INJ [Concomitant]
     Indication: PROPHYLAXIS AGAINST GRAFT VERSUS HOST DISEASE
     Dates: start: 20090417, end: 20090517
  18. METHOTREXATE [Concomitant]
     Indication: PROPHYLAXIS AGAINST GRAFT VERSUS HOST DISEASE
     Dates: start: 20090118, end: 20090420
  19. PH4 TREATED ACIDIC HUMAN NORMAL IMMUNOGLOBULIN [Concomitant]
     Indication: INFECTION PROPHYLAXIS
     Dates: start: 20090420, end: 20090622
  20. ACYCLOVIR [Concomitant]
     Indication: INFECTION PROPHYLAXIS
     Dates: start: 20090526, end: 20090612
  21. FENTANYL CITRATE [Concomitant]
     Indication: ABDOMINAL PAIN UPPER
     Dates: start: 20090618, end: 20090618
  22. NICARDIPINE HYDROCHLORIDE [Concomitant]
     Indication: PROPHYLAXIS
     Dates: start: 20090626, end: 20090628
  23. FAMOTIDINE [Concomitant]
     Dates: start: 20090619, end: 20090628
  24. GRANISETRON HYDROCHLORIDE [Concomitant]
     Dates: start: 20090625, end: 20090628
  25. URSODIOL [Concomitant]
     Indication: PROPHYLAXIS
     Dates: start: 20090406, end: 20090628
  26. VANCOMYCIN HYCHLORIDE [Concomitant]
     Indication: INFECTION PROPHYLAXIS
     Dates: start: 20090406, end: 20090502
  27. POLYMYXIN-B-SULFATE [Concomitant]
     Indication: INFECTION PROPHYLAXIS
     Dates: start: 20090406, end: 20090421
  28. ACYCLOVIR [Concomitant]
     Dates: start: 20090411, end: 20090521
  29. AMPHOTERICIN B [Concomitant]
     Indication: INFECTION PROPHYLAXIS
     Dates: start: 20090513, end: 20090628
  30. TACROLIMUS [Concomitant]
     Dates: start: 20090518, end: 20090626
  31. PREDNISOLONE [Concomitant]
     Indication: PROPHYLAXIS AGAINST GRAFT VERSUS HOST DISEASE
     Dates: start: 20090518, end: 20090524
  32. FAMOTIDINE [Concomitant]
     Indication: GASTRITIS PROPHYLAXIS
     Dates: start: 20090527, end: 20090529
  33. DIAZEPAM [Concomitant]
     Indication: CONVULSION PROPHYLAXIS
     Dates: start: 20090626, end: 20090626
  34. SULFAMETHOXAZOLE AND TRIMETHOPRIM [Concomitant]
     Indication: INFECTION PROPHYLAXIS
     Dates: start: 20090502, end: 20090628
  35. GLYCYRRHIN-GLYCINE-CYSTEINE COMBINED DRUG [Concomitant]
     Indication: HEPATIC FUNCTION ABNORMAL
  36. GLYCYRRHIN-GLYCINE-CYSTEINE COMBINED DRUG [Concomitant]

REACTIONS (19)
  - ANAEMIA [None]
  - CANDIDIASIS [None]
  - CORYNEBACTERIUM INFECTION [None]
  - EPSTEIN-BARR VIRUS ASSOCIATED LYMPHOPROLIFERATIVE DISORDER [None]
  - FACE OEDEMA [None]
  - FEBRILE INFECTION [None]
  - HEPATIC FUNCTION ABNORMAL [None]
  - HISTIOCYTOSIS HAEMATOPHAGIC [None]
  - HYPERAMMONAEMIA [None]
  - HYPERURICAEMIA [None]
  - HYPOALBUMINAEMIA [None]
  - MOUTH HAEMORRHAGE [None]
  - OEDEMA [None]
  - ORAL HERPES [None]
  - ORGAN FAILURE [None]
  - PLATELET COUNT DECREASED [None]
  - STOMATITIS [None]
  - URTICARIA [None]
  - WHITE BLOOD CELL COUNT DECREASED [None]
